FAERS Safety Report 13668687 (Version 3)
Quarter: 2017Q3

REPORT INFORMATION
  Report Type: Report from Study
  Country: US (occurrence: US)
  Receive Date: 20170620
  Receipt Date: 20170727
  Transmission Date: 20171127
  Serious: Yes (Other)
  Sender: FDA-Public Use
  Company Number: US-PFIZER INC-2017027307

PATIENT
  Age: 63 Year
  Sex: Female

DRUGS (3)
  1. IBRANCE [Suspect]
     Active Substance: PALBOCICLIB
     Dosage: 125 MG, CYCLIC (DAILY/3 WEEKS ON / 1 WEEK OFF)
     Route: 048
     Dates: start: 20170214, end: 20170302
  2. IBRANCE [Suspect]
     Active Substance: PALBOCICLIB
     Dosage: 125 MG, CYCLIC (DAILY/ 18DAYS ON-10 DAYS BREAK/OFF)
     Route: 048
     Dates: start: 20170314, end: 20170720
  3. IBRANCE [Suspect]
     Active Substance: PALBOCICLIB
     Indication: BREAST CANCER
     Dosage: 125 MG, CYCLIC (125 MG DAILY FOR 21 ON, 7 OFF)
     Route: 048
     Dates: start: 20170110, end: 20170130

REACTIONS (16)
  - Fatigue [Not Recovered/Not Resolved]
  - White blood cell count decreased [Not Recovered/Not Resolved]
  - Headache [Unknown]
  - Flank pain [Unknown]
  - Blood urine present [Unknown]
  - Irritability [Unknown]
  - Memory impairment [Unknown]
  - Platelet count decreased [Not Recovered/Not Resolved]
  - Somnolence [Unknown]
  - Tumour marker increased [Unknown]
  - Bone marrow failure [Not Recovered/Not Resolved]
  - Condition aggravated [Not Recovered/Not Resolved]
  - Nasopharyngitis [Not Recovered/Not Resolved]
  - Nausea [Recovering/Resolving]
  - Urinary tract infection [Unknown]
  - Neoplasm progression [Unknown]

NARRATIVE: CASE EVENT DATE: 2017
